FAERS Safety Report 6100428-8 (Version None)
Quarter: 2009Q1

REPORT INFORMATION
  Report Type: 
  Country: None (occurrence: None)
  Receive Date: 20090303
  Receipt Date: 20090224
  Transmission Date: 20090719
  Serious: Yes (Hospitalization, Other)
  Sender: FDA-Public Use
  Company Number: US-ABBOTT-09P-163-0559359-00

PATIENT
  Sex: Female

DRUGS (9)
  1. HUMIRA [Suspect]
     Indication: RHEUMATOID ARTHRITIS
     Route: 058
     Dates: start: 20040224, end: 20090116
  2. HUMIRA [Suspect]
     Dosage: EVERY 7 TO 10 DAYS
     Route: 058
     Dates: start: 20090203
  3. EXFORGE [Concomitant]
     Indication: HYPERTENSION
  4. LIPITOR [Concomitant]
     Indication: BLOOD CHOLESTEROL INCREASED
  5. LYRICA [Concomitant]
     Indication: DRUG USE FOR UNKNOWN INDICATION
  6. HALDOL [Concomitant]
     Indication: DRUG USE FOR UNKNOWN INDICATION
  7. IMURAN [Concomitant]
     Indication: RHEUMATOID ARTHRITIS
  8. ULTRAM [Concomitant]
     Indication: DRUG USE FOR UNKNOWN INDICATION
  9. POTASSIUM CHLORIDE [Concomitant]
     Indication: DRUG USE FOR UNKNOWN INDICATION

REACTIONS (3)
  - FEMUR FRACTURE [None]
  - OSTEOARTHRITIS [None]
  - PROCEDURAL PAIN [None]
